FAERS Safety Report 16175116 (Version 1)
Quarter: 2019Q2

REPORT INFORMATION
  Report Type: Other
  Country: GB (occurrence: GB)
  Receive Date: 20190409
  Receipt Date: 20190409
  Transmission Date: 20190711
  Serious: Yes (Other)
  Sender: FDA-Public Use
  Company Number: GB-APOTEX-2019AP011045

PATIENT
  Age: 57 Year
  Sex: Female
  Weight: 58 kg

DRUGS (9)
  1. OMEPRAZOLE. [Concomitant]
     Active Substance: OMEPRAZOLE
     Indication: GASTROOESOPHAGEAL REFLUX DISEASE
     Dosage: 10 MG, UNK
     Route: 065
  2. SYMBICORT [Suspect]
     Active Substance: BUDESONIDE\FORMOTEROL FUMARATE DIHYDRATE
     Dosage: UNK, QD (BEFORE BREATH RETRAINING, QD, INHALER)
     Route: 065
  3. SYMBICORT [Suspect]
     Active Substance: BUDESONIDE\FORMOTEROL FUMARATE DIHYDRATE
     Indication: ASTHMA
     Dosage: 2 DF, BID ( TWO PUFFS, BID, 200/6 TURBOHALER) (INHALATION)
     Route: 055
  4. SALBUTAMOL [Suspect]
     Active Substance: ALBUTEROL
     Indication: ASTHMA
     Dosage: INHALER, 9-12 PUFFS PER DAY; BEFORE BREATHING RETRAINING
     Route: 065
  5. MONTELUKAST [Suspect]
     Active Substance: MONTELUKAST SODIUM
     Indication: ASTHMA
     Dosage: 10 MG, Q.H.S. (10 MG, QD, AT NIGHT)
     Route: 065
  6. MONTELUKAST [Suspect]
     Active Substance: MONTELUKAST SODIUM
     Dosage: UNK UNK, QD
     Route: 065
  7. AVAMYS [Concomitant]
     Active Substance: FLUTICASONE FUROATE
     Indication: SINUSITIS
     Dosage: UNK
     Route: 045
  8. SALBUTAMOL [Suspect]
     Active Substance: ALBUTEROL
     Dosage: 6 DF, PER DAY (INHALER, 6 PUFFS PER DAY; AFTER BREATHING RETRAINING)
     Route: 065
  9. SPIRIVA [Suspect]
     Active Substance: TIOTROPIUM BROMIDE MONOHYDRATE
     Indication: ASTHMA
     Dosage: 1 DF, QD (18 MCG, ONE PUFF, DAILY)
     Route: 065

REACTIONS (3)
  - Palpitations [Unknown]
  - Paraesthesia [Recovered/Resolved]
  - Asthma [Unknown]
